FAERS Safety Report 23271534 (Version 1)
Quarter: 2023Q4

REPORT INFORMATION
  Report Type: Spontaneous
  Country: CA (occurrence: CA)
  Receive Date: 20231207
  Receipt Date: 20231207
  Transmission Date: 20240110
  Serious: Yes (Hospitalization, Other)
  Sender: FDA-Public Use
  Company Number: CA-PFIZER INC-202300182577

PATIENT
  Age: 62 Year
  Sex: Male

DRUGS (3)
  1. ABRILADA [Suspect]
     Active Substance: ADALIMUMAB-AFZB
     Indication: Crohn^s disease
     Dosage: 160 MG, WEEK 0
     Route: 058
     Dates: start: 20230526
  2. ABRILADA [Suspect]
     Active Substance: ADALIMUMAB-AFZB
     Dosage: 80 MG, WEEK 2
     Route: 058
  3. ABRILADA [Suspect]
     Active Substance: ADALIMUMAB-AFZB
     Dosage: 40 MG, EVERY OTHER WEEK
     Route: 058

REACTIONS (6)
  - Ear infection [Unknown]
  - Abdominal pain [Recovering/Resolving]
  - Internal haemorrhage [Recovering/Resolving]
  - Drug ineffective [Unknown]
  - Condition aggravated [Unknown]
  - Tendonitis [Not Recovered/Not Resolved]

NARRATIVE: CASE EVENT DATE: 20231101
